FAERS Safety Report 13269191 (Version 1)
Quarter: 2017Q1

REPORT INFORMATION
  Report Type: Report from Study
  Country: JP (occurrence: JP)
  Receive Date: 20170224
  Receipt Date: 20170224
  Transmission Date: 20170428
  Serious: Yes (Other)
  Sender: FDA-Public Use
  Company Number: JP-PFIZER INC-2017080385

PATIENT
  Age: 82 Year
  Sex: Male

DRUGS (3)
  1. SODIUM THIOSULPHATE [Concomitant]
     Active Substance: SODIUM THIOSULFATE
     Dosage: 1000 MG/M2, UNK
     Route: 042
  2. DOCETAXEL. [Suspect]
     Active Substance: DOCETAXEL
     Indication: GINGIVAL CANCER
     Dosage: 10 MG/M2 X 2, WEEKLY (TOTAL DOSE 2) CYCLIC
     Route: 013
  3. CISPLATIN. [Suspect]
     Active Substance: CISPLATIN
     Indication: GINGIVAL CANCER
     Dosage: 5 MG/M2 X 8, DAILY CYCLIC
     Route: 013

REACTIONS (1)
  - Facial paralysis [Recovered/Resolved]
